FAERS Safety Report 4430717-4 (Version None)
Quarter: 2004Q3

REPORT INFORMATION
  Report Type: 
  Country: None (occurrence: None)
  Receive Date: 20040819
  Receipt Date: 20040819
  Transmission Date: 20050211
  Serious: Yes (Hospitalization)
  Sender: FDA-Public Use
  Company Number: None

PATIENT
  Age: 87 Year
  Sex: Female
  Weight: 52.1 kg

DRUGS (4)
  1. MEMANTINE HCL [Suspect]
     Indication: DEMENTIA ALZHEIMER'S TYPE
     Dosage: 5 MG DAILY ORAL
     Route: 048
     Dates: start: 20040721, end: 20040802
  2. DONEPEZIL HCL [Concomitant]
  3. ARICEPT [Concomitant]
  4. MECLIZINE [Concomitant]

REACTIONS (1)
  - PANCREATITIS ACUTE [None]
